FAERS Safety Report 24870689 (Version 1)
Quarter: 2025Q1

REPORT INFORMATION
  Report Type: Spontaneous
  Country: CN (occurrence: CN)
  Receive Date: 20250121
  Receipt Date: 20250121
  Transmission Date: 20250408
  Serious: Yes (Other)
  Sender: RANBAXY
  Company Number: CN-SUN PHARMACEUTICAL INDUSTRIES LTD-2025R1-488830

PATIENT
  Age: 45 Year
  Sex: Male

DRUGS (4)
  1. PALIPERIDONE [Suspect]
     Active Substance: PALIPERIDONE
     Indication: Psychiatric symptom
     Dosage: 6 MILLIGRAM, QD
     Route: 048
     Dates: start: 20241003, end: 20241007
  2. PALIPERIDONE [Suspect]
     Active Substance: PALIPERIDONE
     Dosage: 12 MILLIGRAM, QD
     Route: 048
     Dates: start: 20241008, end: 20241023
  3. PALIPERIDONE [Suspect]
     Active Substance: PALIPERIDONE
     Dosage: 6 MILLIGRAM, QD
     Route: 048
     Dates: start: 20241024, end: 20241025
  4. VALPROATE MAGNESIUM [Suspect]
     Active Substance: VALPROATE MAGNESIUM
     Indication: Mood swings
     Dosage: 0.5 GRAM, TID
     Route: 048
     Dates: start: 20231003, end: 20231023

REACTIONS (1)
  - Hepatic function abnormal [Recovering/Resolving]

NARRATIVE: CASE EVENT DATE: 20241023
